FAERS Safety Report 19676031 (Version 3)
Quarter: 2021Q4

REPORT INFORMATION
  Report Type: Spontaneous
  Country: US (occurrence: US)
  Receive Date: 20210809
  Receipt Date: 20211112
  Transmission Date: 20220304
  Serious: Yes (Other)
  Sender: FDA-Public Use
  Company Number: US-ALKERMES INC.-ALK-2021-004081

PATIENT
  Sex: Male

DRUGS (3)
  1. VIVITROL [Suspect]
     Active Substance: NALTREXONE
     Indication: Drug dependence
     Dosage: 380 MILLIGRAM, QMO
     Route: 030
     Dates: start: 20210916
  2. VIVITROL [Suspect]
     Active Substance: NALTREXONE
     Indication: Alcoholism
     Dosage: 380 MILLIGRAM, QMO
     Route: 030
     Dates: start: 202107, end: 202107
  3. VIVITROL [Suspect]
     Active Substance: NALTREXONE
     Dosage: 380 MILLIGRAM, QMO
     Route: 030
     Dates: start: 2015, end: 2015

REACTIONS (5)
  - Knee operation [Recovered/Resolved]
  - Wrong technique in product usage process [Recovered/Resolved]
  - Drug abuse [Recovered/Resolved]
  - Injection site reaction [Recovered/Resolved]
  - Injection site pain [Recovered/Resolved]
